FAERS Safety Report 8779075 (Version 1)
Quarter: 2012Q4

REPORT INFORMATION
  Report Type: 
  Country: FR (occurrence: FR)
  Receive Date: 20120912
  Receipt Date: 20120912
  Transmission Date: 20130627
  Serious: Yes (Hospitalization)
  Sender: FDA-Public Use
  Company Number: FR-BRISTOL-MYERS SQUIBB COMPANY-16930364

PATIENT
  Age: 83 Year
  Sex: Female

DRUGS (7)
  1. COUMADINE [Suspect]
     Route: 048
  2. SINGULAIR [Concomitant]
  3. NORSET [Concomitant]
  4. TEMESTA [Concomitant]
  5. CACIT D3 [Concomitant]
  6. MOTILIUM [Concomitant]
  7. CORTANCYL [Concomitant]

REACTIONS (4)
  - Haematoma [Recovered/Resolved]
  - Fall [Recovered/Resolved]
  - International normalised ratio increased [Recovered/Resolved]
  - Overdose [Recovered/Resolved]
